FAERS Safety Report 4314809-6 (Version None)
Quarter: 2004Q1

REPORT INFORMATION
  Report Type: 
  Country: None (occurrence: None)
  Receive Date: 20040310
  Receipt Date: 20040303
  Transmission Date: 20041129
  Serious: Yes (Death, Hospitalization)
  Sender: FDA-Public Use
  Company Number: PHNU2004DE01125

PATIENT
  Sex: Female

DRUGS (1)
  1. GLEEVEC [Suspect]
     Indication: CHRONIC MYELOID LEUKAEMIA
     Dosage: 200MG/DAY
     Route: 048
     Dates: start: 20030701, end: 20040226

REACTIONS (7)
  - ANAEMIA OF MALIGNANT DISEASE [None]
  - CONDITION AGGRAVATED [None]
  - DEHYDRATION [None]
  - HAEMOGLOBIN DECREASED [None]
  - ILEUS [None]
  - PACKED RED BLOOD CELL TRANSFUSION [None]
  - VOMITING [None]
